FAERS Safety Report 4686934-1 (Version None)
Quarter: 2005Q2

REPORT INFORMATION
  Report Type: 
  Country: None (occurrence: None)
  Receive Date: 20050608
  Receipt Date: 20050525
  Transmission Date: 20051028
  Serious: Yes (Congenital Anomaly)
  Sender: FDA-Public Use
  Company Number: USA050599196

PATIENT
  Sex: Female

DRUGS (2)
  1. INSULIN [Suspect]
  2. DES [Concomitant]

REACTIONS (4)
  - CONGENITAL OVARIAN ANOMALY [None]
  - KIDNEY DUPLEX [None]
  - MATERNAL CONDITION AFFECTING FOETUS [None]
  - OVARIAN ATROPHY [None]
